FAERS Safety Report 7713580 (Version 3)
Quarter: 2013Q1

REPORT INFORMATION
  Report Type: Spontaneous
  Country: US (occurrence: US)
  Receive Date: 20101216
  Receipt Date: 20130307
  Transmission Date: 20140127
  Serious: No
  Sender: FDA-Public Use
  Company Number: US-BIOGENIDEC-2010BI043006

PATIENT
  Age: 40 None
  Sex: Female

DRUGS (2)
  1. TYSABRI [Suspect]
     Indication: MULTIPLE SCLEROSIS
     Route: 042
     Dates: start: 20071025, end: 20080220
  2. TYSABRI [Suspect]
     Indication: MULTIPLE SCLEROSIS
     Route: 042
     Dates: start: 20101001

REACTIONS (19)
  - Memory impairment [Not Recovered/Not Resolved]
  - Urinary retention [Not Recovered/Not Resolved]
  - Erythema [Not Recovered/Not Resolved]
  - Nail psoriasis [Not Recovered/Not Resolved]
  - Neurogenic bladder [Recovered/Resolved]
  - Amnesia [Unknown]
  - Vision blurred [Not Recovered/Not Resolved]
  - Breast pain [Recovered/Resolved]
  - Fibrocystic breast disease [Not Recovered/Not Resolved]
  - Insomnia [Not Recovered/Not Resolved]
  - Skin hypertrophy [Not Recovered/Not Resolved]
  - Tremor [Not Recovered/Not Resolved]
  - Atonic urinary bladder [Not Recovered/Not Resolved]
  - Fatigue [Recovered/Resolved with Sequelae]
  - Nasopharyngitis [Recovered/Resolved]
  - Pyelonephritis [Recovered/Resolved]
  - Headache [Recovered/Resolved with Sequelae]
  - Respiratory tract infection [Recovered/Resolved]
  - Urinary tract infection [Recovered/Resolved]
